FAERS Safety Report 20063590 (Version 1)
Quarter: 2021Q4

REPORT INFORMATION
  Report Type: Spontaneous
  Country: US (occurrence: None)
  Receive Date: 20211112
  Receipt Date: 20211112
  Transmission Date: 20220304
  Serious: Yes (Other)
  Sender: FDA-Public Use
  Company Number: None

PATIENT
  Age: 66 Year
  Sex: Female
  Weight: 90 kg

DRUGS (7)
  1. VASCEPA [Suspect]
     Active Substance: ICOSAPENT ETHYL
  2. Orb Adar tan Ststin [Concomitant]
  3. amlofipine [Concomitant]
  4. met Forman [Concomitant]
  5. METOPROLOL [Concomitant]
     Active Substance: METOPROLOL
  6. TRESIBA [Concomitant]
     Active Substance: INSULIN DEGLUDEC
  7. FAMOTIDINE [Concomitant]
     Active Substance: FAMOTIDINE

REACTIONS (2)
  - Diarrhoea [None]
  - Pain [None]

NARRATIVE: CASE EVENT DATE: 20211010
